FAERS Safety Report 12208087 (Version 1)
Quarter: 2016Q1

REPORT INFORMATION
  Report Type: Spontaneous
  Country: NL (occurrence: NL)
  Receive Date: 20160324
  Receipt Date: 20160324
  Transmission Date: 20160526
  Serious: Yes (Other)
  Sender: FDA-Public Use
  Company Number: NL-009507513-1603NLD010444

PATIENT
  Age: 56 Year
  Sex: Male

DRUGS (1)
  1. VELMETIA [Suspect]
     Active Substance: METFORMIN\SITAGLIPTIN
     Indication: TYPE 2 DIABETES MELLITUS
     Dosage: 1 DF, BID (ONE INTAKE IN THE MORNING AND ANOTHER ONE IN THE EVENING)
     Route: 065
     Dates: start: 201503

REACTIONS (2)
  - Dermatitis bullous [Not Recovered/Not Resolved]
  - Oral discomfort [Unknown]

NARRATIVE: CASE EVENT DATE: 201601
